FAERS Safety Report 7450437-1 (Version None)
Quarter: 2011Q2

REPORT INFORMATION
  Report Type: 
  Country: None (occurrence: None)
  Receive Date: 20110429
  Receipt Date: 20110429
  Transmission Date: 20111010
  Serious: Yes (Other)
  Sender: FDA-Public Use
  Company Number: None

PATIENT
  Age: 43 Year
  Sex: Female
  Weight: 100.5 kg

DRUGS (2)
  1. LEVEMIR [Suspect]
     Indication: TYPE 2 DIABETES MELLITUS
     Dosage: 62 UNITS Q HS SQ
     Route: 058
     Dates: start: 20110420, end: 20110421
  2. INSULIN ASPART [Concomitant]

REACTIONS (6)
  - SINUS HEADACHE [None]
  - VOMITING [None]
  - DIZZINESS [None]
  - BALANCE DISORDER [None]
  - NAUSEA [None]
  - MALAISE [None]
